FAERS Safety Report 4638637-7 (Version None)
Quarter: 2005Q2

REPORT INFORMATION
  Report Type: 
  Country: None (occurrence: None)
  Receive Date: 20050325
  Receipt Date: 20041124
  Transmission Date: 20051028
  Serious: No
  Sender: FDA-Public Use
  Company Number: USA041184381

PATIENT
  Age: 59 Year
  Sex: Female

DRUGS (2)
  1. FORTEO [Suspect]
     Indication: OSTEOPOROSIS
     Dosage: 20 MG/1 DAY
     Dates: start: 20041026
  2. EVISTA [Suspect]
     Dosage: 60 MG/1 DAY
     Dates: start: 20000101, end: 20030101

REACTIONS (5)
  - HYPERHIDROSIS [None]
  - MENOPAUSAL SYMPTOMS [None]
  - MIDDLE INSOMNIA [None]
  - MIGRAINE [None]
  - MUSCLE SPASMS [None]
